FAERS Safety Report 16199411 (Version 1)
Quarter: 2019Q2

REPORT INFORMATION
  Report Type: Spontaneous
  Country: DE (occurrence: DE)
  Receive Date: 20190415
  Receipt Date: 20190415
  Transmission Date: 20190711
  Serious: Yes (Hospitalization, Disabling, Other)
  Sender: FDA-Public Use
  Company Number: DE-PFIZER INC-2019162074

PATIENT
  Age: 58 Year
  Sex: Male

DRUGS (37)
  1. AMOXICILLIN [AMOXICILLIN TRIHYDRATE] [Suspect]
     Active Substance: AMOXICILLIN
     Dosage: UNK (AMOXILLIN AL)
     Route: 065
     Dates: start: 201305, end: 2013
  2. ALLOPURINOL. [Suspect]
     Active Substance: ALLOPURINOL
     Dosage: UNK (HEUMANN)
     Route: 048
     Dates: start: 201411, end: 2015
  3. ALLOPURINOL. [Suspect]
     Active Substance: ALLOPURINOL
     Dosage: UNK (ALLOPURINOL ABZ)
     Route: 048
     Dates: start: 201512, end: 2017
  4. MOXONIDIN [Suspect]
     Active Substance: MOXONIDINE
     Dosage: UNK (MOXONIDIN AL)
     Route: 048
     Dates: start: 201603, end: 2016
  5. DICLAC (DICLOFENAC SODIUM) [Suspect]
     Active Substance: DICLOFENAC SODIUM
     Dosage: UNK
     Route: 065
     Dates: start: 201203, end: 2012
  6. ALLOPURINOL. [Suspect]
     Active Substance: ALLOPURINOL
     Dosage: UNK (ALLOPURINOL AL)
     Route: 048
     Dates: start: 201307, end: 2016
  7. ALLOPURINOL. [Suspect]
     Active Substance: ALLOPURINOL
     Dosage: UNK (ALLOPURINOL HEUMANN)
     Route: 048
     Dates: start: 201311, end: 2014
  8. MOXONIDIN [Suspect]
     Active Substance: MOXONIDINE
     Dosage: UNK (MOXONIDIN AAA PHARMA)
     Route: 048
     Dates: start: 201509, end: 2017
  9. OLMETEC [Suspect]
     Active Substance: OLMESARTAN MEDOXOMIL
     Dosage: UNK
     Route: 065
     Dates: start: 201311, end: 2014
  10. NASONEX [Suspect]
     Active Substance: MOMETASONE FUROATE
     Dosage: UNK
     Route: 065
     Dates: start: 201205, end: 2013
  11. CELECOXIB. [Suspect]
     Active Substance: CELECOXIB
     Dosage: UNK
     Route: 065
     Dates: start: 201501, end: 2016
  12. AMLODIPINE/OLMESARTAN MEDOXOMIL [Suspect]
     Active Substance: AMLODIPINE\OLMESARTAN
     Dosage: UNK
     Route: 065
     Dates: start: 201202, end: 2013
  13. METAMIZOL [METAMIZOLE MAGNESIUM] [Suspect]
     Active Substance: METAMIZOLE MAGNESIUM
     Dosage: UNK
     Route: 065
     Dates: start: 201309, end: 2017
  14. AMOXICILLIN [AMOXICILLIN TRIHYDRATE] [Suspect]
     Active Substance: AMOXICILLIN
     Dosage: UNK (AMOXILLIN RATIOPHARMA)
     Route: 065
     Dates: start: 201402, end: 2014
  15. ALLOPURINOL. [Suspect]
     Active Substance: ALLOPURINOL
     Dosage: UNK (ALLOPURINOL AL)
     Route: 048
     Dates: start: 201303, end: 2016
  16. TORASEMIDE [Suspect]
     Active Substance: TORSEMIDE
     Dosage: UNK (TORASEMID ABZ)
     Route: 048
     Dates: start: 201405, end: 2014
  17. TORASEMIDE [Suspect]
     Active Substance: TORSEMIDE
     Dosage: UNK (TORASEMID AL)
     Route: 048
     Dates: start: 201505, end: 2017
  18. MOMETASONE [Suspect]
     Active Substance: MOMETASONE
     Dosage: UNK
     Route: 065
     Dates: start: 201610, end: 2016
  19. PREDNISOLON [PREDNISOLONE] [Suspect]
     Active Substance: PREDNISOLONE
     Dosage: UNK (PREDNISOLON AL)
     Route: 065
     Dates: start: 201309, end: 2013
  20. PANTOPRAZOLE [Suspect]
     Active Substance: PANTOPRAZOLE
     Dosage: UNK (PANTOPRAZOL 1A PHARMA)
     Route: 065
     Dates: start: 201207, end: 2014
  21. OMEPRAZOLE. [Suspect]
     Active Substance: OMEPRAZOLE
     Dosage: UNK
     Route: 048
     Dates: start: 201307, end: 2013
  22. CANDECOR [Suspect]
     Active Substance: CANDESARTAN CILEXETIL
     Dosage: UNK
     Route: 048
     Dates: start: 201409, end: 2014
  23. VOTUM (OLMESARTAN MEDOXOMIL) [Suspect]
     Active Substance: OLMESARTAN MEDOXOMIL
     Dosage: UNK
     Route: 065
     Dates: start: 201402, end: 2014
  24. GASTRONERTON [METOCLOPRAMIDE HYDROCHLORIDE] [Suspect]
     Active Substance: METOCLOPRAMIDE HYDROCHLORIDE
     Dosage: UNK
     Route: 065
     Dates: start: 201306, end: 2013
  25. IBU [Suspect]
     Active Substance: IBUPROFEN
     Dosage: UNK
     Route: 065
     Dates: start: 201602, end: 2017
  26. NALOXONE/TILIDINE [Suspect]
     Active Substance: NALOXONE HYDROCHLORIDE\TILIDINE HYDROCHLORIDE
     Dosage: UNK
     Route: 065
     Dates: start: 201409, end: 2016
  27. METOPROLOL SUCCINATE. [Suspect]
     Active Substance: METOPROLOL SUCCINATE
     Dosage: UNK
     Route: 048
     Dates: start: 201202, end: 2013
  28. VALSARTAN. [Suspect]
     Active Substance: VALSARTAN
     Dosage: UNK (1A PHARMA)
     Route: 065
     Dates: start: 201501, end: 2017
  29. PREDNISOLON [PREDNISOLONE] [Suspect]
     Active Substance: PREDNISOLONE
     Dosage: UNK (PREDNISOLON ACIS)
     Route: 065
     Dates: start: 201311, end: 2013
  30. PANTOPRAZOLE [Suspect]
     Active Substance: PANTOPRAZOLE
     Dosage: UNK (PANTOPRAZOLE TAD)
     Route: 065
     Dates: start: 201601, end: 2016
  31. METOPROLOL SUCCINATE. [Suspect]
     Active Substance: METOPROLOL SUCCINATE
     Dosage: UNK
     Route: 048
     Dates: start: 201302, end: 2014
  32. DOXYCYCLIN 1A PHARMA [Suspect]
     Active Substance: DOXYCYCLINE
     Dosage: UNK
     Route: 048
     Dates: start: 201205, end: 2012
  33. MOXONIDIN [Suspect]
     Active Substance: MOXONIDINE
     Dosage: UNK (MOXONIDIN HEU NET)
     Route: 048
     Dates: start: 201311, end: 2015
  34. IBUFLAM [IBUPROFEN] [Suspect]
     Active Substance: IBUPROFEN
     Dosage: UNK
     Route: 048
     Dates: start: 201304, end: 2016
  35. TORASEMIDE [Suspect]
     Active Substance: TORSEMIDE
     Dosage: UNK (TORASEMID STADA)
     Route: 048
     Dates: start: 201409, end: 2014
  36. METAMIZOLE SODIUM [Suspect]
     Active Substance: METAMIZOLE SODIUM
     Dosage: UNK
     Route: 065
     Dates: start: 201309, end: 2017
  37. DEXAGENT OPHTAL [DEXAMETHASONE;GENTAMICIN SULFATE] [Suspect]
     Active Substance: DEXAMETHASONE\GENTAMICIN SULFATE
     Dosage: UNK
     Route: 065
     Dates: start: 201212, end: 2013

REACTIONS (1)
  - Papillary renal cell carcinoma [Unknown]

NARRATIVE: CASE EVENT DATE: 201705
